FAERS Safety Report 17687892 (Version 1)
Quarter: 2020Q2

REPORT INFORMATION
  Report Type: Spontaneous
  Country: US (occurrence: US)
  Receive Date: 20200418
  Receipt Date: 20200418
  Transmission Date: 20200714
  Serious: Yes (Death, Hospitalization)
  Sender: FDA-Public Use
  Company Number: None

PATIENT
  Sex: Male
  Weight: 60.9 kg

DRUGS (1)
  1. CARBOPLATIN. [Suspect]
     Active Substance: CARBOPLATIN
     Indication: PROSTATE CANCER
     Dates: start: 20191209, end: 20200312

REACTIONS (6)
  - Haemoglobin decreased [None]
  - Hypophagia [None]
  - Asthenia [None]
  - Weight decreased [None]
  - Constipation [None]
  - Packed red blood cell transfusion [None]

NARRATIVE: CASE EVENT DATE: 20200312
